FAERS Safety Report 8888189 (Version 1)
Quarter: 2012Q4

REPORT INFORMATION
  Report Type: 
  Country: US (occurrence: US)
  Receive Date: 20121106
  Receipt Date: 20121106
  Transmission Date: 20130627
  Serious: Yes (Other)
  Sender: FDA-Public Use
  Company Number: US-BAYER-2012-112474

PATIENT
  Age: 56 Year
  Sex: Male
  Weight: 84 kg

DRUGS (2)
  1. BAYER ASPIRIN REGIMEN ADULT LOW STRENGTH [Suspect]
     Dosage: 1 DF, QD
     Route: 048
     Dates: start: 201110
  2. NOPRON [Concomitant]

REACTIONS (5)
  - Dizziness [None]
  - Loss of consciousness [None]
  - Fall [None]
  - Head injury [None]
  - Joint injury [None]
